FAERS Safety Report 6640865-6 (Version None)
Quarter: 2010Q1

REPORT INFORMATION
  Report Type: 
  Country: None (occurrence: None)
  Receive Date: 20100302
  Receipt Date: 20100121
  Transmission Date: 20100710
  Serious: No
  Sender: FDA-Public Use
  Company Number: 2010009730

PATIENT
  Sex: Male

DRUGS (4)
  1. TOVIAZ [Suspect]
     Dosage: ORAL
     Route: 048
  2. DETROL LA [Suspect]
     Dosage: ORAL
     Route: 048
  3. ALTACE [Suspect]
     Dosage: ORAL
     Route: 048
  4. LORAZEPAM [Suspect]
     Dosage: ORAL
     Route: 048

REACTIONS (3)
  - BLOOD PRESSURE FLUCTUATION [None]
  - DRY MOUTH [None]
  - INCONTINENCE [None]
